FAERS Safety Report 9143802 (Version 1)
Quarter: 2013Q1

REPORT INFORMATION
  Report Type: Report from Study
  Country: GB (occurrence: GB)
  Receive Date: 20130306
  Receipt Date: 20130306
  Transmission Date: 20140127
  Serious: Yes (Hospitalization)
  Sender: FDA-Public Use
  Company Number: GB-ROCHE-1198225

PATIENT
  Age: 70 Year
  Sex: Female
  Weight: 61.7 kg

DRUGS (9)
  1. BEVACIZUMAB [Suspect]
     Indication: GASTRIC CANCER
     Dosage: MOST RECENT DOSE- 500 MG; DATE OF MOST RECENT ADMINISTRATION- 07/NOV/2012
     Route: 042
     Dates: start: 20121017
  2. CAPECITABINE [Suspect]
     Indication: GASTRIC CANCER
     Dosage: MOST RECENT DOSE- 1500 MG; DATE OF MOST RECENT ADMINISTRATION- NOV/2012
     Route: 048
     Dates: start: 20121017
  3. CISPLATIN [Suspect]
     Indication: GASTRIC CANCER
     Dosage: MOST RECENT DOSE- 111 MG; DATE OF MOST RECENT ADMINISTRATION- 07/NOV/2012
     Route: 042
     Dates: start: 20121017
  4. EPIRUBICIN [Suspect]
     Indication: GASTRIC CANCER
     Dosage: MOST RECENT DOSE- 90 MG; DATE OF MOST RECENT ADMINISTRATION- 07/NOV/2012
     Route: 042
     Dates: start: 20121017
  5. FELODIPINE [Concomitant]
     Route: 048
  6. LANSOPRAZOLE [Concomitant]
     Route: 048
  7. DEXAMETHASONE [Concomitant]
     Route: 048
  8. CODEINE [Concomitant]
     Dosage: 30-60 MG
     Route: 048
  9. PARACETAMOL [Concomitant]
     Route: 048

REACTIONS (3)
  - Pulmonary embolism [Not Recovered/Not Resolved]
  - Dysphagia [Not Recovered/Not Resolved]
  - Abdominal pain [Recovered/Resolved]
